FAERS Safety Report 18336896 (Version 2)
Quarter: 2021Q4

REPORT INFORMATION
  Report Type: Spontaneous
  Country: AR (occurrence: AR)
  Receive Date: 20201002
  Receipt Date: 20211026
  Transmission Date: 20220304
  Serious: Yes (Hospitalization)
  Sender: FDA-Public Use
  Company Number: AR-PFIZER INC-2020374756

PATIENT
  Age: 67 Year
  Sex: Female

DRUGS (3)
  1. ENBREL [Suspect]
     Active Substance: ETANERCEPT
     Indication: Rheumatoid arthritis
     Dosage: 50 MG, WEEKLY
     Route: 065
     Dates: start: 20110805
  2. ENBREL [Suspect]
     Active Substance: ETANERCEPT
     Dosage: 50 MG (EVERY 10 DAYS)
     Route: 065
     Dates: start: 202009
  3. ENBREL [Suspect]
     Active Substance: ETANERCEPT
     Dosage: 50 MG, EVERY 15 DAYS (SOMETIMES A WEEK)
     Route: 065

REACTIONS (5)
  - Anosmia [Unknown]
  - Off label use [Unknown]
  - Intentional product misuse [Unknown]
  - Suspected COVID-19 [Unknown]
  - Pain [Not Recovered/Not Resolved]

NARRATIVE: CASE EVENT DATE: 20200901
